FAERS Safety Report 5049503-X (Version None)
Quarter: 2006Q3

REPORT INFORMATION
  Report Type: 
  Country: None (occurrence: None)
  Receive Date: 20060706
  Receipt Date: 20060619
  Transmission Date: 20061208
  Serious: Yes (Death)
  Sender: FDA-Public Use
  Company Number: 2006RR-02737

PATIENT
  Age: 40 Year
  Sex: Male

DRUGS (4)
  1. FLUOXETINE [Suspect]
  2. OLANZAPINE [Suspect]
  3. DIAZEPAM [Concomitant]
  4. TEMAZEPAM [Concomitant]

REACTIONS (4)
  - BLOOD ALCOHOL INCREASED [None]
  - DEPRESSED LEVEL OF CONSCIOUSNESS [None]
  - DRUG LEVEL INCREASED [None]
  - RESPIRATORY DEPRESSION [None]
